APPROVED DRUG PRODUCT: HALDOL SOLUTAB
Active Ingredient: HALOPERIDOL
Strength: 1MG
Dosage Form/Route: TABLET;ORAL
Application: N017079 | Product #001
Applicant: ORTHO MCNEIL PHARMACEUTICAL INC
Approved: Approved Prior to Jan 1, 1982 | RLD: No | RS: No | Type: DISCN